FAERS Safety Report 7876152-8 (Version None)
Quarter: 2011Q4

REPORT INFORMATION
  Report Type: 
  Country: None (occurrence: None)
  Receive Date: 20111031
  Receipt Date: 20111025
  Transmission Date: 20120403
  Serious: Yes (Death, Hospitalization)
  Sender: FDA-Public Use
  Company Number: FR-ELI_LILLY_AND_COMPANY-FR201110006339

PATIENT
  Sex: Male

DRUGS (5)
  1. PRAVASTATIN [Concomitant]
     Dosage: UNK, UNKNOWN
     Route: 065
  2. PERINDOPRIL ERBUMINE [Concomitant]
     Dosage: 5 MG, QD
     Route: 048
  3. EFFIENT [Suspect]
     Dosage: 10 MG, QD
     Route: 048
     Dates: start: 20110501
  4. ASPIRIN [Concomitant]
     Dosage: 75 MG, UNKNOWN
     Route: 048
     Dates: start: 20110501
  5. CARVEDILOL [Concomitant]
     Dosage: 12.5 MG, BID
     Route: 048

REACTIONS (2)
  - CEREBELLAR HAEMATOMA [None]
  - COMA [None]
